FAERS Safety Report 7091520-2 (Version None)
Quarter: 2010Q4

REPORT INFORMATION
  Report Type: 
  Country: None (occurrence: None)
  Receive Date: 20101109
  Receipt Date: 20101102
  Transmission Date: 20110411
  Serious: Yes (Other)
  Sender: FDA-Public Use
  Company Number: GR-PFIZER INC-2010139204

PATIENT
  Age: 31 Year
  Sex: Female

DRUGS (1)
  1. ZYVOX [Suspect]
     Indication: ABSCESS DRAINAGE
     Dosage: UNK
     Route: 042
     Dates: start: 20071201, end: 20071201

REACTIONS (5)
  - ERYTHEMA [None]
  - HYPERHIDROSIS [None]
  - LARYNGOSPASM [None]
  - PRURITUS [None]
  - STRIDOR [None]
